FAERS Safety Report 7112890-2 (Version None)
Quarter: 2010Q4

REPORT INFORMATION
  Report Type: 
  Country: None (occurrence: None)
  Receive Date: 20101119
  Receipt Date: 20100413
  Transmission Date: 20110411
  Serious: No
  Sender: FDA-Public Use
  Company Number: US-BRISTOL-MYERS SQUIBB COMPANY-15069115

PATIENT
  Age: 65 Year
  Sex: Female

DRUGS (2)
  1. AVALIDE [Suspect]
  2. AMLODIPINE [Suspect]

REACTIONS (4)
  - ASTHENIA [None]
  - BLOOD PRESSURE INCREASED [None]
  - FEELING JITTERY [None]
  - IRRITABILITY [None]
